FAERS Safety Report 17834892 (Version 1)
Quarter: 2020Q2

REPORT INFORMATION
  Report Type: Spontaneous
  Country: US (occurrence: US)
  Receive Date: 20200528
  Receipt Date: 20200528
  Transmission Date: 20200714
  Serious: Yes (Other)
  Sender: FDA-Public Use
  Company Number: None

PATIENT
  Age: 56 Year
  Sex: Male
  Weight: 77 kg

DRUGS (2)
  1. CONVALESCENT PLASMA [Concomitant]
     Active Substance: HUMAN PLASMA
  2. REMDESIVIR. [Suspect]
     Active Substance: REMDESIVIR
     Indication: COVID-19
     Dates: start: 20200525

REACTIONS (4)
  - Product use in unapproved indication [None]
  - Dysphagia [None]
  - Clinical trial participant [None]
  - Headache [None]

NARRATIVE: CASE EVENT DATE: 20200528
